FAERS Safety Report 9190273 (Version 3)
Quarter: 2013Q4

REPORT INFORMATION
  Report Type: Spontaneous
  Country: GB (occurrence: GB)
  Receive Date: 20130326
  Receipt Date: 20131101
  Transmission Date: 20140711
  Serious: Yes (Life-Threatening, Other)
  Sender: FDA-Public Use
  Company Number: GB-BRISTOL-MYERS SQUIBB COMPANY-18592741

PATIENT
  Age: 67 Year
  Sex: Male
  Weight: 98 kg

DRUGS (7)
  1. HYDROXYCARBAMIDE [Suspect]
     Indication: POLYCYTHAEMIA VERA
     Dosage: HYDRO: 500MG MON TO FRI (HAD 4?DOSES WITH MISPLACED NG TUBE). INCREASED TO 500MG DAILY?CAPS
  2. SPIRONOLACTONE [Concomitant]
  3. ASPIRIN [Concomitant]
  4. LACTULOSE [Concomitant]
  5. ERYTHROMYCIN [Concomitant]
     Dosage: SUSPENSION
  6. QUETIAPINE [Concomitant]
  7. LANSOPRAZOLE [Concomitant]
     Indication: HIATUS HERNIA

REACTIONS (9)
  - Pleural effusion [Not Recovered/Not Resolved]
  - Respiratory failure [Unknown]
  - Coma scale abnormal [Unknown]
  - Psychotic disorder [Unknown]
  - Hallucination [Unknown]
  - Platelet count increased [Unknown]
  - White blood cell count increased [Unknown]
  - Neutrophil count increased [Unknown]
  - Incorrect route of drug administration [Unknown]
